FAERS Safety Report 24151133 (Version 2)
Quarter: 2024Q3

REPORT INFORMATION
  Report Type: Spontaneous
  Country: JP (occurrence: JP)
  Receive Date: 20240730
  Receipt Date: 20240816
  Transmission Date: 20241017
  Serious: Yes (Other)
  Sender: RANBAXY
  Company Number: JP-SUN PHARMACEUTICAL INDUSTRIES LTD-2024RR-459461

PATIENT
  Age: 75 Year
  Sex: Female

DRUGS (4)
  1. SPIRONOLACTONE [Suspect]
     Active Substance: SPIRONOLACTONE
     Indication: Polyuria
     Dosage: UNK
     Route: 065
  2. FUROSEMIDE [Suspect]
     Active Substance: FUROSEMIDE
     Indication: Polyuria
     Dosage: UNK
     Route: 065
  3. VELCADE [Suspect]
     Active Substance: BORTEZOMIB
     Indication: Clonal haematopoiesis
     Dosage: 1.0 MG/M2
     Route: 040
  4. DEXAMETHASONE [Suspect]
     Active Substance: DEXAMETHASONE
     Indication: Clonal haematopoiesis
     Dosage: 20 MILLIGRAM
     Route: 048

REACTIONS (4)
  - Dyspnoea [Unknown]
  - Drug ineffective [Unknown]
  - Atrioventricular block [Recovered/Resolved]
  - Pleural effusion [Recovered/Resolved]
